FAERS Safety Report 21668039 (Version 1)
Quarter: 2022Q4

REPORT INFORMATION
  Report Type: Spontaneous
  Country: US (occurrence: US)
  Receive Date: 20221201
  Receipt Date: 20221201
  Transmission Date: 20230112
  Serious: Yes (Other)
  Sender: FDA-Public Use
  Company Number: US-SA-SAC20221201000044

PATIENT
  Age: 12 Year
  Sex: Female
  Weight: 47.619 kg

DRUGS (1)
  1. DUPIXENT [Suspect]
     Active Substance: DUPILUMAB
     Indication: Dermatitis atopic
     Dosage: 200 MG,  FREQUENCY: OTHER
     Route: 058

REACTIONS (2)
  - Angina pectoris [Unknown]
  - Palpitations [Unknown]
